FAERS Safety Report 26073267 (Version 1)
Quarter: 2025Q4

REPORT INFORMATION
  Report Type: Spontaneous
  Country: US (occurrence: US)
  Receive Date: 20251121
  Receipt Date: 20251121
  Transmission Date: 20260117
  Serious: No
  Sender: OTSUKA
  Company Number: US-OTSUKA-2025_000804

PATIENT
  Sex: Female

DRUGS (1)
  1. NUEDEXTA [Suspect]
     Active Substance: DEXTROMETHORPHAN HYDROBROMIDE\QUINIDINE SULFATE
     Indication: Parkinson^s disease
     Dosage: UNK, QD (ONCE A DAY AT NIGHT)
     Route: 065

REACTIONS (3)
  - Therapy interrupted [Not Recovered/Not Resolved]
  - Off label use [Unknown]
  - Product use issue [Unknown]
